FAERS Safety Report 9077471 (Version 4)
Quarter: 2013Q2

REPORT INFORMATION
  Report Type: Report from Study
  Country: US (occurrence: US)
  Receive Date: 20130130
  Receipt Date: 20130607
  Transmission Date: 20140414
  Serious: Yes (Hospitalization, Other)
  Sender: FDA-Public Use
  Company Number: US-BRISTOL-MYERS SQUIBB COMPANY-17245044

PATIENT
  Age: 66 Year
  Sex: Female
  Weight: 56 kg

DRUGS (17)
  1. CARBOPLATIN [Suspect]
     Indication: NEOPLASM MALIGNANT
     Dosage: LAST DOSE:04OCT12?AUC 4 ON DAY 1 OF 21
     Route: 042
     Dates: start: 20120620, end: 20121004
  2. GEMCITABINE [Suspect]
     Indication: NEOPLASM MALIGNANT
     Dosage: ALSO TAKEN 04OCT12?DAY 1 AND 8 OF EACH 21 DAY CYCLE
     Route: 042
     Dates: start: 20120620, end: 20121004
  3. DEXAMETHASONE [Concomitant]
     Indication: PROPHYLAXIS OF NAUSEA AND VOMITING
     Dosage: DAY 1-3 AND 8
     Dates: start: 20120620
  4. PALONOSETRON [Concomitant]
     Indication: PROPHYLAXIS OF NAUSEA AND VOMITING
     Dates: start: 20120620
  5. ONDANSETRON [Concomitant]
     Indication: PROPHYLAXIS OF NAUSEA AND VOMITING
     Dates: start: 20120620
  6. CALCITONIN [Concomitant]
     Indication: OSTEOPOROSIS
     Route: 045
     Dates: start: 2005
  7. ASPIRIN [Concomitant]
     Indication: CARDIOVASCULAR EVENT PROPHYLAXIS
     Dates: start: 2011
  8. MELATONIN [Concomitant]
     Indication: SLEEP DISORDER
     Dates: start: 2005
  9. MUSHROOM [Concomitant]
     Dates: start: 2011
  10. VACCINIUM MYRETILLUS [Concomitant]
     Dates: start: 2011
  11. DETROL [Concomitant]
     Indication: AUTOMATIC BLADDER
     Dates: start: 2011
  12. VITAMIN D [Concomitant]
     Indication: VITAMIN SUPPLEMENTATION
     Dates: start: 2011
  13. PSYLLIUM [Concomitant]
     Dates: start: 2011
  14. GREEN TEA [Concomitant]
     Dates: start: 2011
  15. NEUPOGEN [Concomitant]
     Indication: NEUTROPENIA
     Dates: start: 20120802, end: 20120802
  16. NEULASTA [Concomitant]
     Indication: PROPHYLAXIS
     Dates: start: 20120803
  17. VITAMIN B COMPLEX [Concomitant]
     Indication: VITAMIN SUPPLEMENTATION
     Dates: start: 2011

REACTIONS (1)
  - Bladder squamous cell carcinoma stage unspecified [Recovered/Resolved]
